FAERS Safety Report 8056271-6 (Version None)
Quarter: 2011Q4

REPORT INFORMATION
  Report Type: 
  Country: None (occurrence: None)
  Receive Date: 20111220
  Receipt Date: 20110831
  Transmission Date: 20120403
  Serious: Yes (Hospitalization)
  Sender: FDA-Public Use
  Company Number: PHEH2011US02555

PATIENT
  Age: 67 Year
  Sex: Male

DRUGS (15)
  1. IRON (IRON) [Concomitant]
  2. LANTUS [Concomitant]
  3. VANCOMYCIN [Concomitant]
  4. PROGRAF [Concomitant]
  5. ZOSYN [Concomitant]
  6. FOLIC ACID [Concomitant]
  7. BACTRIM [Concomitant]
  8. VITAMIN B12 [Concomitant]
  9. ENALAPRIL MALEATE [Concomitant]
  10. OMEPRAZOLE [Concomitant]
  11. MEDROL [Concomitant]
  12. LASIX [Concomitant]
  13. MYFORTIC [Suspect]
     Indication: HEART TRANSPLANT
     Dates: start: 20110201
  14. ZOCOR [Concomitant]
  15. MAGNESIUM (MAGNESIUM) [Concomitant]

REACTIONS (5)
  - PYREXIA [None]
  - SINUS CONGESTION [None]
  - PNEUMONIA [None]
  - MYRINGITIS [None]
  - OTITIS MEDIA [None]
